FAERS Safety Report 13894622 (Version 1)
Quarter: 2017Q3

REPORT INFORMATION
  Report Type: Spontaneous
  Country: US (occurrence: US)
  Receive Date: 20170817
  Receipt Date: 20170817
  Transmission Date: 20171127
  Serious: Yes (Other)
  Sender: FDA-Public Use
  Company Number: None

PATIENT
  Sex: Female
  Weight: 60.75 kg

DRUGS (4)
  1. IMITREX [Concomitant]
     Active Substance: SUMATRIPTAN SUCCINATE
  2. TYLENOL [Concomitant]
     Active Substance: ACETAMINOPHEN
  3. OXYBUTUNIN [Concomitant]
  4. TROKENDI XR [Suspect]
     Active Substance: TOPIRAMATE
     Indication: MIGRAINE
     Dosage: ?          QUANTITY:1 CAPSULE(S);?
     Route: 048
     Dates: start: 20170707, end: 20170817

REACTIONS (5)
  - Fatigue [None]
  - Eyelid ptosis [None]
  - Adverse drug reaction [None]
  - Eye pain [None]
  - Flatulence [None]

NARRATIVE: CASE EVENT DATE: 20170815
